FAERS Safety Report 23259300 (Version 1)
Quarter: 2023Q4

REPORT INFORMATION
  Report Type: Spontaneous
  Country: FR (occurrence: FR)
  Receive Date: 20231204
  Receipt Date: 20231204
  Transmission Date: 20240110
  Serious: Yes (Other)
  Sender: FDA-Public Use
  Company Number: FR-AMERICAN REGENT INC-2023002788

PATIENT
  Age: 76 Year
  Sex: Female

DRUGS (2)
  1. FERINJECT [Suspect]
     Active Substance: FERRIC CARBOXYMALTOSE
     Indication: Product used for unknown indication
     Dosage: DILUTION: 250 ML IN PHYSIOLOGICAL SERUM (MEDIUM) (1 GM)
     Dates: start: 20231116, end: 20231116
  2. FERINJECT [Suspect]
     Active Substance: FERRIC CARBOXYMALTOSE
     Dosage: IN OTHER ARM
     Dates: start: 20231123, end: 20231123

REACTIONS (1)
  - Venous injury [Unknown]

NARRATIVE: CASE EVENT DATE: 20231116
